FAERS Safety Report 7733338-0 (Version None)
Quarter: 2011Q3

REPORT INFORMATION
  Report Type: 
  Country: None (occurrence: None)
  Receive Date: 20110902
  Receipt Date: 20110902
  Transmission Date: 20111222
  Serious: Yes (Life-Threatening, Hospitalization, Disabling, Other)
  Sender: FDA-Public Use
  Company Number: None

PATIENT
  Sex: Female
  Weight: 74.8435 kg

DRUGS (2)
  1. SULFAMETHOXAZOLE [Suspect]
     Indication: URINARY TRACT DISORDER
     Dosage: BY MOUTH
     Route: 048
     Dates: start: 20110701, end: 20110707
  2. BACTRIM DS [Suspect]

REACTIONS (1)
  - DRUG HYPERSENSITIVITY [None]
